FAERS Safety Report 12104651 (Version 1)
Quarter: 2016Q1

REPORT INFORMATION
  Report Type: Spontaneous
  Country: US (occurrence: US)
  Receive Date: 20160223
  Receipt Date: 20160223
  Transmission Date: 20160526
  Serious: No
  Sender: FDA-Public Use
  Company Number: US-VERTEX PHARMACEUTICALS-2016-000946

PATIENT
  Sex: Male

DRUGS (9)
  1. CAYSTON [Concomitant]
     Active Substance: AZTREONAM
  2. LORATADINE. [Concomitant]
     Active Substance: LORATADINE
  3. ORKAMBI [Suspect]
     Active Substance: IVACAFTOR\LUMACAFTOR
     Indication: CYSTIC FIBROSIS
     Dosage: 400-250 MG, BID
     Route: 048
     Dates: start: 20150707
  4. CREON [Concomitant]
     Active Substance: PANCRELIPASE AMYLASE\PANCRELIPASE LIPASE\PANCRELIPASE PROTEASE
  5. VITAMIN [Concomitant]
     Active Substance: VITAMINS
  6. AUGMENTIN [Concomitant]
     Active Substance: AMOXICILLIN\CLAVULANATE POTASSIUM
  7. DAYTRANA [Concomitant]
     Active Substance: METHYLPHENIDATE
  8. RANITIDINE [Concomitant]
     Active Substance: RANITIDINE\RANITIDINE HYDROCHLORIDE
  9. PULMOZYME [Concomitant]
     Active Substance: DORNASE ALFA

REACTIONS (4)
  - Nausea [Unknown]
  - Dyspnoea [Unknown]
  - Weight increased [Unknown]
  - Chest discomfort [Unknown]
